FAERS Safety Report 4273201-3 (Version None)
Quarter: 2004Q1

REPORT INFORMATION
  Report Type: 
  Country: None (occurrence: None)
  Receive Date: 20040116
  Receipt Date: 20040105
  Transmission Date: 20041129
  Serious: Yes (Hospitalization)
  Sender: FDA-Public Use
  Company Number: FR-BRISTOL-MYERS SQUIBB COMPANY-12470886

PATIENT
  Age: 48 Year
  Sex: Female

DRUGS (4)
  1. CEFACIDAL INJ 1 G [Suspect]
     Route: 042
  2. DIPRIVAN [Concomitant]
  3. SUFENTA [Concomitant]
  4. NORCURON [Concomitant]

REACTIONS (1)
  - ANAPHYLACTIC SHOCK [None]
